FAERS Safety Report 13059477 (Version 1)
Quarter: 2016Q4

REPORT INFORMATION
  Report Type: Spontaneous
  Country: ES (occurrence: ES)
  Receive Date: 20161223
  Receipt Date: 20161223
  Transmission Date: 20170207
  Serious: Yes (Other)
  Sender: FDA-Public Use
  Company Number: PHHY2016ES176480

PATIENT
  Age: 51 Year
  Sex: Female

DRUGS (2)
  1. GLIVEC [Suspect]
     Active Substance: IMATINIB MESYLATE
     Dosage: UNK
     Route: 065
     Dates: start: 20161125
  2. GLIVEC [Suspect]
     Active Substance: IMATINIB MESYLATE
     Indication: NEUROENDOCRINE TUMOUR
     Dosage: 400 MG, QD
     Route: 065
     Dates: start: 20160929, end: 20161111

REACTIONS (1)
  - Hyperthyroidism [Recovered/Resolved]

NARRATIVE: CASE EVENT DATE: 20161111
